FAERS Safety Report 13119242 (Version 1)
Quarter: 2017Q1

REPORT INFORMATION
  Report Type: Spontaneous
  Country: US (occurrence: US)
  Receive Date: 20170116
  Receipt Date: 20170116
  Transmission Date: 20170428
  Serious: No
  Sender: FDA-Public Use
  Company Number: US-CHIESI USA INC.-US-2016CHI000784

PATIENT

DRUGS (1)
  1. CUROSURF [Suspect]
     Active Substance: PORACTANT ALFA
     Indication: NEONATAL RESPIRATORY DISTRESS SYNDROME
     Dosage: 4 ML/KG ONCE
     Route: 007
     Dates: start: 20160411, end: 20160411

REACTIONS (1)
  - Incorrect dose administered [Unknown]

NARRATIVE: CASE EVENT DATE: 20160411
